FAERS Safety Report 6140238-9 (Version None)
Quarter: 2009Q2

REPORT INFORMATION
  Report Type: 
  Country: None (occurrence: None)
  Receive Date: 20090401
  Receipt Date: 20090326
  Transmission Date: 20091009
  Serious: Yes (Other)
  Sender: FDA-Public Use
  Company Number: NZ-WYE-G03404609

PATIENT
  Sex: Female

DRUGS (1)
  1. VENLAFAXINE HYDROCHLORIDE [Suspect]
     Indication: DEPRESSION

REACTIONS (3)
  - CEREBRAL ATROPHY [None]
  - CHOREOATHETOSIS [None]
  - CONCOMITANT DISEASE PROGRESSION [None]
